FAERS Safety Report 5240412-X (Version None)
Quarter: 2007Q1

REPORT INFORMATION
  Report Type: 
  Country: None (occurrence: None)
  Receive Date: 20070219
  Receipt Date: 20070207
  Transmission Date: 20070707
  Serious: Yes (Hospitalization)
  Sender: FDA-Public Use
  Company Number: PHBS2007IT02586

PATIENT
  Age: 76 Year
  Sex: Female

DRUGS (3)
  1. MUSCORIL [Suspect]
     Indication: BACK PAIN
     Dosage: 1 DF/DAY
     Route: 030
     Dates: start: 20070201, end: 20070201
  2. PANTECTA [Concomitant]
     Indication: GASTROOESOPHAGEAL REFLUX DISEASE
     Dates: start: 20070101, end: 20070201
  3. VOLTAREN [Suspect]
     Indication: BACK PAIN
     Dosage: 1 DF/DAY
     Route: 030
     Dates: start: 20070201, end: 20070201

REACTIONS (4)
  - DEPRESSED LEVEL OF CONSCIOUSNESS [None]
  - LOSS OF CONSCIOUSNESS [None]
  - TRANSIENT ISCHAEMIC ATTACK [None]
  - VOMITING [None]
